FAERS Safety Report 25848765 (Version 2)
Quarter: 2025Q4

REPORT INFORMATION
  Report Type: Spontaneous
  Country: EU (occurrence: EU)
  Receive Date: 20250925
  Receipt Date: 20251006
  Transmission Date: 20260118
  Serious: Yes (Life-Threatening, Hospitalization, Other)
  Sender: MYLAN
  Company Number: None

PATIENT
  Age: 23 Year
  Sex: Male

DRUGS (1)
  1. METFORMIN [Suspect]
     Active Substance: METFORMIN HYDROCHLORIDE
     Indication: Product used for unknown indication
     Dosage: 180 DOSAGE FORM (180 TABLET OF 1G )
     Dates: start: 20250907, end: 20250907

REACTIONS (4)
  - Metabolic acidosis [Recovered/Resolved]
  - Hyperlactacidaemia [Recovered/Resolved]
  - Intentional overdose [Recovered/Resolved]
  - Suicide attempt [Unknown]

NARRATIVE: CASE EVENT DATE: 20250908
